FAERS Safety Report 13670873 (Version 1)
Quarter: 2017Q2

REPORT INFORMATION
  Report Type: Spontaneous
  Country: US (occurrence: US)
  Receive Date: 20170620
  Receipt Date: 20170620
  Transmission Date: 20170830
  Serious: No
  Sender: FDA-Public Use
  Company Number: US-ROCHE-1404162

PATIENT
  Sex: Male

DRUGS (5)
  1. XELODA [Suspect]
     Active Substance: CAPECITABINE
     Indication: RECTOSIGMOID CANCER
     Dosage: IN AM
     Route: 048
     Dates: start: 20140501
  2. ASPIRIN. [Concomitant]
     Active Substance: ASPIRIN
  3. MOXIFLOXACIN. [Concomitant]
     Active Substance: MOXIFLOXACIN
  4. XELODA [Suspect]
     Active Substance: CAPECITABINE
     Dosage: IN PM
     Route: 048
  5. LINEZOLID. [Concomitant]
     Active Substance: LINEZOLID

REACTIONS (2)
  - Hypoaesthesia oral [Unknown]
  - Nausea [Unknown]
